FAERS Safety Report 7607925-4 (Version None)
Quarter: 2011Q3

REPORT INFORMATION
  Report Type: 
  Country: None (occurrence: None)
  Receive Date: 20110714
  Receipt Date: 20091122
  Transmission Date: 20111222
  Serious: Yes (Other)
  Sender: FDA-Public Use
  Company Number: US-BAYER-200940335NA

PATIENT
  Age: 54 Year
  Sex: Male
  Weight: 75 kg

DRUGS (13)
  1. LOVENOX [Concomitant]
     Dosage: 1MG/KG
     Route: 058
     Dates: start: 20060202
  2. NITROGLYCERIN [Concomitant]
     Dosage: TITRATE
     Route: 042
     Dates: start: 20060202
  3. CRESTOR [Concomitant]
     Dosage: 10MG
     Route: 048
     Dates: start: 20060202
  4. TRASYLOL [Suspect]
     Indication: PRODUCT USED FOR UNKNOWN INDICATION
     Dosage: NO INITIAL DOSE
     Route: 042
     Dates: start: 20060203, end: 20060203
  5. TRASYLOL [Suspect]
     Dosage: 200ML FOLLOWED BY 50/ML INFUSION [PER ANESTHESIA]
  6. RED BLOOD CELLS [Concomitant]
     Dosage: UNK
     Route: 042
     Dates: start: 20060203, end: 20060203
  7. BENICAR [Concomitant]
     Dosage: 20MG
     Route: 048
  8. VYTORIN [Concomitant]
     Dosage: 10/20
     Route: 048
     Dates: start: 20030101
  9. ACETYLSALICYLIC ACID SRT [Concomitant]
     Dosage: 81MG
     Route: 048
  10. PEPCID [Concomitant]
     Dosage: UNK
     Route: 042
     Dates: start: 20060202
  11. HEPARIN [Concomitant]
     Dosage: 1000/HR
     Route: 042
     Dates: start: 20060203
  12. ACTOS [Concomitant]
     Dosage: 30MG
     Route: 048
     Dates: start: 20030101
  13. NITROGLYCERIN [Concomitant]
     Dosage: UNK
     Route: 042
     Dates: start: 20060203, end: 20060203

REACTIONS (12)
  - STRESS [None]
  - RENAL INJURY [None]
  - ANHEDONIA [None]
  - EMOTIONAL DISTRESS [None]
  - UNEVALUABLE EVENT [None]
  - RENAL FAILURE [None]
  - ANXIETY [None]
  - FEAR [None]
  - PSYCHIATRIC SYMPTOM [None]
  - RENAL IMPAIRMENT [None]
  - PAIN [None]
  - INJURY [None]
